FAERS Safety Report 7148206-5 (Version None)
Quarter: 2010Q4

REPORT INFORMATION
  Report Type: 
  Country: None (occurrence: None)
  Receive Date: 20101209
  Receipt Date: 20101126
  Transmission Date: 20110411
  Serious: Yes (Other)
  Sender: FDA-Public Use
  Company Number: DE-RANBAXY-2010RR-39959

PATIENT
  Sex: Male
  Weight: 80 kg

DRUGS (4)
  1. SIMVASTATIN [Suspect]
     Indication: HYPERLIPIDAEMIA
     Dosage: 10 MG, UNK
     Route: 048
  2. VERAPAMIL [Concomitant]
     Route: 048
  3. ACETYLSALICYLSAEURE [Concomitant]
     Route: 048
  4. HYGROTON 25 [Concomitant]
     Route: 048

REACTIONS (4)
  - BLOOD CREATINE PHOSPHOKINASE INCREASED [None]
  - GENERAL PHYSICAL CONDITION ABNORMAL [None]
  - MUSCULOSKELETAL PAIN [None]
  - MYALGIA [None]
